FAERS Safety Report 4685866-2 (Version None)
Quarter: 2005Q2

REPORT INFORMATION
  Report Type: 
  Country: None (occurrence: None)
  Receive Date: 20050606
  Receipt Date: 20050606
  Transmission Date: 20051028
  Serious: Yes (Other)
  Sender: FDA-Public Use
  Company Number: None

PATIENT
  Sex: Female
  Weight: 47.1741 kg

DRUGS (2)
  1. NIX [Suspect]
     Indication: ERYTHEMA
     Dosage: WETTING MEDIUM LENGTH HAIR, APPROXIMATELY 4 OUNCES
  2. NIX [Suspect]
     Indication: LICE INFESTATION
     Dosage: WETTING MEDIUM LENGTH HAIR, APPROXIMATELY 4 OUNCES

REACTIONS (1)
  - APPLICATION SITE DESQUAMATION [None]
